FAERS Safety Report 7464295-2 (Version None)
Quarter: 2011Q2

REPORT INFORMATION
  Report Type: 
  Country: None (occurrence: None)
  Receive Date: 20110509
  Receipt Date: 20110429
  Transmission Date: 20111010
  Serious: Yes (Other)
  Sender: FDA-Public Use
  Company Number: US-BIOGENIDEC-2011BI013673

PATIENT
  Age: 28 Year
  Sex: Female

DRUGS (6)
  1. ATIVAN [Concomitant]
  2. CELEXA [Concomitant]
  3. LITHIUM [Concomitant]
  4. TYSABRI [Suspect]
     Indication: CROHN'S DISEASE
     Route: 042
     Dates: start: 20100811
  5. ZOFRAN [Concomitant]
  6. MEDICATIONS NOS [Concomitant]
     Indication: BIPOLAR DISORDER
     Dates: start: 20101001

REACTIONS (1)
  - CHOLANGITIS SCLEROSING [None]
